FAERS Safety Report 9471061 (Version 1)
Quarter: 2013Q3

REPORT INFORMATION
  Report Type: Spontaneous
  Country: GB (occurrence: GB)
  Receive Date: 20130822
  Receipt Date: 20130822
  Transmission Date: 20140515
  Serious: Yes (Other)
  Sender: FDA-Public Use
  Company Number: GB-PFIZER INC-2013243722

PATIENT
  Age: 2 Year
  Sex: Male

DRUGS (1)
  1. EPIPEN [Suspect]
     Indication: ANAPHYLAXIS TREATMENT
     Dosage: 0.15 MG, AS NEEDED
     Route: 030
     Dates: start: 20120625

REACTIONS (4)
  - Pain [Unknown]
  - Wound [Unknown]
  - Procedural complication [Unknown]
  - Device failure [Recovered/Resolved]
